FAERS Safety Report 7492685-0 (Version None)
Quarter: 2011Q2

REPORT INFORMATION
  Report Type: 
  Country: None (occurrence: None)
  Receive Date: 20110519
  Receipt Date: 20110509
  Transmission Date: 20111010
  Serious: Yes (Other)
  Sender: FDA-Public Use
  Company Number: ES-GILEAD-E2B_00001261

PATIENT
  Age: 45 Year
  Sex: Male
  Weight: 62 kg

DRUGS (4)
  1. REYATAZ [Suspect]
     Route: 048
     Dates: start: 20100930
  2. VIREAD [Suspect]
     Route: 048
     Dates: start: 20100930
  3. INTELENCE [Suspect]
     Route: 048
     Dates: start: 20100930
  4. NORVIR [Suspect]
     Route: 048
     Dates: start: 20100930

REACTIONS (2)
  - AGEUSIA [None]
  - ANOSMIA [None]
